FAERS Safety Report 20559079 (Version 2)
Quarter: 2022Q1

REPORT INFORMATION
  Report Type: Spontaneous
  Country: US (occurrence: US)
  Receive Date: 20220307
  Receipt Date: 20220312
  Transmission Date: 20220423
  Serious: No
  Sender: FDA-Public Use
  Company Number: US-JNJFOC-20220236225

PATIENT
  Age: 36 Year
  Sex: Female
  Weight: 65.830 kg

DRUGS (1)
  1. TREMFYA [Suspect]
     Active Substance: GUSELKUMAB
     Indication: Product used for unknown indication
     Dosage: 100 MG/ML
     Route: 065

REACTIONS (4)
  - Device deployment issue [Unknown]
  - Injection site extravasation [Unknown]
  - Injury associated with device [Unknown]
  - Product dose omission issue [Unknown]

NARRATIVE: CASE EVENT DATE: 20220212
